FAERS Safety Report 12238873 (Version 1)
Quarter: 2016Q2

REPORT INFORMATION
  Report Type: Spontaneous
  Country: US (occurrence: US)
  Receive Date: 20160405
  Receipt Date: 20160405
  Transmission Date: 20160815
  Serious: No
  Sender: FDA-Public Use
  Company Number: US-SHIRE-US201603972

PATIENT
  Sex: Female
  Weight: 50.79 kg

DRUGS (2)
  1. PENTASA [Suspect]
     Active Substance: MESALAMINE
     Dosage: 500 MG, UNKNOWN (8 PILLS PER DAY)
     Route: 048
     Dates: start: 2016, end: 20160305
  2. PENTASA [Suspect]
     Active Substance: MESALAMINE
     Indication: LARGE INTESTINAL ULCER HAEMORRHAGE
     Dosage: 250 MG, UNKNOWN (8 PILLS PER DAY)
     Route: 048
     Dates: start: 201601, end: 2016

REACTIONS (4)
  - Onychoclasis [Recovering/Resolving]
  - Product use issue [Recovered/Resolved]
  - Condition aggravated [Recovering/Resolving]
  - Alopecia [Recovering/Resolving]

NARRATIVE: CASE EVENT DATE: 2016
